FAERS Safety Report 9404838 (Version 1)
Quarter: 2013Q3

REPORT INFORMATION
  Report Type: Spontaneous
  Country: FR (occurrence: FR)
  Receive Date: 20130717
  Receipt Date: 20130717
  Transmission Date: 20140515
  Serious: Yes (Death, Other)
  Sender: FDA-Public Use
  Company Number: FR-SANOFI-AVENTIS-2013SA070067

PATIENT
  Age: 72 Year
  Sex: Male

DRUGS (7)
  1. LOVENOX [Suspect]
     Indication: THROMBOSIS PROPHYLAXIS
     Route: 058
     Dates: start: 20130521, end: 20130614
  2. PLAVIX [Suspect]
     Indication: THROMBOSIS PROPHYLAXIS
     Route: 048
     Dates: start: 2001, end: 20130614
  3. CORTANCYL [Concomitant]
  4. ATACAND [Concomitant]
  5. INEXIUM [Concomitant]
  6. DOLIPRANE [Concomitant]
  7. CALCIDOSE VITAMINE D [Concomitant]

REACTIONS (3)
  - Heparin-induced thrombocytopenia [Fatal]
  - Thrombotic stroke [Fatal]
  - Haemorrhage [Unknown]
